FAERS Safety Report 4571869-5 (Version None)
Quarter: 2005Q1

REPORT INFORMATION
  Report Type: 
  Country: None (occurrence: None)
  Receive Date: 20050207
  Receipt Date: 20041029
  Transmission Date: 20050727
  Serious: Yes (Hospitalization, Other)
  Sender: FDA-Public Use
  Company Number: PHEH2004US11815

PATIENT
  Age: 68 Year
  Sex: Female
  Weight: 73 kg

DRUGS (8)
  1. CARBATROL [Suspect]
     Indication: TRIGEMINAL NEURALGIA
     Route: 048
  2. BACLOFEN [Concomitant]
  3. AMITRIPTYLINE [Concomitant]
  4. TEGRETOL-XR [Suspect]
     Indication: TRIGEMINAL NEURALGIA
     Route: 048
  5. TAMOXIFEN CITRATE [Concomitant]
     Indication: BREAST CANCER FEMALE
     Dosage: 20 MG, QD
     Route: 048
     Dates: start: 20010615
  6. BUMETANIDE [Concomitant]
     Indication: OEDEMA
     Dosage: 2 MG, QD
     Route: 048
     Dates: start: 20021211
  7. NORVASC [Concomitant]
     Indication: HYPERTENSION
     Dosage: 5 MG, QD
     Route: 048
     Dates: start: 20031211
  8. CARDIZEM [Concomitant]
     Indication: HYPERTENSION
     Dosage: 240 MG, QD
     Route: 046
     Dates: start: 20010404

REACTIONS (14)
  - BLOOD POTASSIUM DECREASED [None]
  - CONDITION AGGRAVATED [None]
  - CONFUSIONAL STATE [None]
  - DEEP VEIN THROMBOSIS [None]
  - DYSARTHRIA [None]
  - DYSKINESIA [None]
  - DYSTONIA [None]
  - FACIAL PAIN [None]
  - FATIGUE [None]
  - OEDEMA PERIPHERAL [None]
  - PYREXIA [None]
  - SPEECH DISORDER [None]
  - TREMOR [None]
  - TRIGEMINAL NEURALGIA [None]
